FAERS Safety Report 6693609-6 (Version None)
Quarter: 2010Q2

REPORT INFORMATION
  Report Type: 
  Country: None (occurrence: None)
  Receive Date: 20100423
  Receipt Date: 20100412
  Transmission Date: 20101027
  Serious: Yes (Hospitalization, Other)
  Sender: FDA-Public Use
  Company Number: US-CELGENEUS-163-20785-10031368

PATIENT
  Sex: Female
  Weight: 68.1 kg

DRUGS (17)
  1. THALOMID [Suspect]
     Indication: MULTIPLE MYELOMA
     Route: 048
     Dates: start: 20100201
  2. DEXAMETHASONE [Concomitant]
     Indication: MULTIPLE MYELOMA
     Route: 065
     Dates: start: 20080101
  3. DEXAMETHASONE [Concomitant]
     Route: 065
     Dates: start: 20100101
  4. VELCADE [Concomitant]
     Indication: MULTIPLE MYELOMA
     Route: 065
     Dates: start: 20100101
  5. MELPHALAN HYDROCHLORIDE [Concomitant]
     Indication: MULTIPLE MYELOMA
     Route: 065
     Dates: start: 20100101
  6. MULTI-VITAMINS [Concomitant]
     Indication: DRUG USE FOR UNKNOWN INDICATION
     Route: 048
  7. LISINOPRIL [Concomitant]
     Indication: DRUG USE FOR UNKNOWN INDICATION
     Route: 065
  8. PREVACID [Concomitant]
     Indication: DRUG USE FOR UNKNOWN INDICATION
     Route: 065
  9. PERCOCET [Concomitant]
     Indication: DRUG USE FOR UNKNOWN INDICATION
     Dosage: 1-2 TABLETS
     Route: 048
  10. ARIXTRA [Concomitant]
     Route: 058
  11. PREDNISONE [Concomitant]
     Indication: DRUG USE FOR UNKNOWN INDICATION
     Route: 065
  12. ACYCLOVIR [Concomitant]
     Indication: DRUG USE FOR UNKNOWN INDICATION
     Route: 048
  13. CALCIUM CARBONATE AND VITAMIN D [Concomitant]
     Indication: DRUG USE FOR UNKNOWN INDICATION
     Dosage: 600MG/400 UNITS; 1 TABLET
     Route: 048
  14. PROTONIX [Concomitant]
     Indication: REFLUX GASTRITIS
     Route: 048
  15. NITROGLYCERIN [Concomitant]
     Indication: CHEST PAIN
     Route: 060
     Dates: start: 20100301
  16. FONDAPARINUX SODIUM [Concomitant]
     Indication: DRUG USE FOR UNKNOWN INDICATION
     Route: 065
  17. MORPHINE [Concomitant]
     Indication: PAIN
     Route: 065

REACTIONS (13)
  - BRONCHITIS [None]
  - CANDIDIASIS [None]
  - DEEP VEIN THROMBOSIS [None]
  - DEHYDRATION [None]
  - DRUG INEFFECTIVE [None]
  - GASTRITIS [None]
  - HYPERKALAEMIA [None]
  - MULTIPLE MYELOMA [None]
  - OESOPHAGEAL STENOSIS [None]
  - PANCYTOPENIA [None]
  - SPINAL CORD COMPRESSION [None]
  - URINARY RETENTION [None]
  - URINARY TRACT INFECTION [None]
